FAERS Safety Report 24581421 (Version 1)
Quarter: 2024Q4

REPORT INFORMATION
  Report Type: Spontaneous
  Country: CN (occurrence: CN)
  Receive Date: 20241105
  Receipt Date: 20241105
  Transmission Date: 20250115
  Serious: Yes (Life-Threatening, Hospitalization)
  Sender: PERRIGO
  Company Number: CN-MLMSERVICE-20241023-PI235539-00233-1

PATIENT
  Age: 7 Year
  Sex: Female
  Weight: 28 kg

DRUGS (2)
  1. NAPROXEN SODIUM [Suspect]
     Active Substance: NAPROXEN SODIUM
     Indication: Respiratory tract infection
     Dosage: UNK, UNK
     Route: 048
  2. SPIRAMYCIN [Concomitant]
     Active Substance: SPIRAMYCIN
     Indication: Respiratory tract infection
     Dosage: UNKNOWN, UNKNOWN
     Route: 048

REACTIONS (2)
  - Toxic epidermal necrolysis [Recovered/Resolved]
  - Myocardial necrosis marker increased [Recovered/Resolved]
